FAERS Safety Report 12777518 (Version 1)
Quarter: 2016Q3

REPORT INFORMATION
  Report Type: Spontaneous
  Country: US (occurrence: US)
  Receive Date: 20160924
  Receipt Date: 20160924
  Transmission Date: 20161109
  Serious: No
  Sender: FDA-Public Use
  Company Number: US-TEVA-646774USA

PATIENT
  Age: 23 Year
  Sex: Male

DRUGS (1)
  1. CLONAZEPAM. [Suspect]
     Active Substance: CLONAZEPAM
     Indication: ANXIETY
     Dosage: 1.5 MILLIGRAM DAILY; AS NEEDED
     Route: 048

REACTIONS (6)
  - Memory impairment [Unknown]
  - Road traffic accident [Unknown]
  - Feeling abnormal [Unknown]
  - Intentional product misuse [Unknown]
  - Drug abuse [Unknown]
  - Speech disorder [Unknown]

NARRATIVE: CASE EVENT DATE: 20160315
